FAERS Safety Report 5528278-1 (Version None)
Quarter: 2007Q4

REPORT INFORMATION
  Report Type: 
  Country: None (occurrence: None)
  Receive Date: 20071128
  Receipt Date: 20071115
  Transmission Date: 20080405
  Serious: Yes (Other)
  Sender: FDA-Public Use
  Company Number: JP-ASTRAZENECA-2007AP07115

PATIENT
  Age: 18077 Day
  Sex: Female
  Weight: 48 kg

DRUGS (10)
  1. ARIMIDEX [Suspect]
     Indication: BREAST CANCER
     Route: 048
     Dates: start: 20070910
  2. WARFARIN SODIUM [Interacting]
     Indication: ANTICOAGULANT THERAPY
     Route: 048
     Dates: start: 20050815, end: 20071009
  3. WARFARIN SODIUM [Interacting]
     Route: 048
     Dates: start: 20071012
  4. DIOVAN [Concomitant]
     Route: 048
  5. CALTAN [Concomitant]
     Route: 048
  6. GLYSENNID [Concomitant]
     Route: 048
  7. DEPAKENE [Concomitant]
     Route: 048
  8. PLETAL [Concomitant]
     Route: 048
  9. ASPIRIN [Concomitant]
     Route: 048
  10. LENDORMIN D [Concomitant]
     Route: 048

REACTIONS (1)
  - DRUG INTERACTION POTENTIATION [None]
